FAERS Safety Report 5485953-5 (Version None)
Quarter: 2007Q4

REPORT INFORMATION
  Report Type: 
  Country: None (occurrence: None)
  Receive Date: 20071012
  Receipt Date: 20071008
  Transmission Date: 20080405
  Serious: Yes (Death, Hospitalization)
  Sender: FDA-Public Use
  Company Number: E2020-01710-SPO-FR

PATIENT
  Age: 82 Year
  Sex: Female

DRUGS (9)
  1. ARICEPT [Suspect]
     Indication: DEMENTIA ALZHEIMER'S TYPE
     Dosage: 10 MG, 1 IN 1 D, ORAL
     Route: 048
     Dates: start: 20060715, end: 20070502
  2. CITALOPRAM HYDROBROMIDE [Suspect]
     Indication: DRUG USE FOR UNKNOWN INDICATION
     Dosage: 20 MG, ORAL
     Route: 048
     Dates: start: 20060715, end: 20070502
  3. OMEPRAZOLE [Suspect]
     Indication: DRUG USE FOR UNKNOWN INDICATION
     Dosage: ORAL
     Route: 048
     Dates: start: 20060715, end: 20070502
  4. CETRORNAN (ORIENTHINE OXOGLURATE) [Suspect]
     Indication: DRUG USE FOR UNKNOWN INDICATION
     Dosage: 10 GM, ORAL
     Route: 048
     Dates: start: 20070401, end: 20070502
  5. LASIX [Concomitant]
  6. DIGOXIN [Concomitant]
  7. ALDACTONE [Concomitant]
  8. INSULIN [Concomitant]
  9. NITRIDERM (GLYCERYL TRINITRATE) [Concomitant]

REACTIONS (7)
  - ACUTE HEPATIC FAILURE [None]
  - CYTOLYTIC HEPATITIS [None]
  - DEHYDRATION [None]
  - DYSPNOEA [None]
  - GENERAL PHYSICAL HEALTH DETERIORATION [None]
  - HEART RATE IRREGULAR [None]
  - OEDEMA PERIPHERAL [None]
